FAERS Safety Report 13649091 (Version 3)
Quarter: 2019Q1

REPORT INFORMATION
  Report Type: Spontaneous
  Country: US (occurrence: US)
  Receive Date: 20170613
  Receipt Date: 20190228
  Transmission Date: 20190417
  Serious: Yes (Other)
  Sender: FDA-Public Use
  Company Number: US-BAUSCH-BL-2017-018209

PATIENT
  Age: 78 Year
  Sex: Female
  Weight: 81.27 kg

DRUGS (4)
  1. APRISO [Suspect]
     Active Substance: MESALAMINE
     Indication: PRODUCT USE IN UNAPPROVED INDICATION
  2. LIPITOR [Suspect]
     Active Substance: ATORVASTATIN CALCIUM
     Indication: PRODUCT USED FOR UNKNOWN INDICATION
     Route: 065
  3. SYNTHROID [Concomitant]
     Active Substance: LEVOTHYROXINE SODIUM
     Indication: PRODUCT USED FOR UNKNOWN INDICATION
     Dosage: 1.25 (UNITS NOT REPORTED) ONCE A DAY
  4. APRISO [Suspect]
     Active Substance: MESALAMINE
     Indication: IRRITABLE BOWEL SYNDROME
     Dosage: 4 CAPSULES IN THE MORNING
     Route: 048
     Dates: start: 20170424, end: 20170531

REACTIONS (9)
  - Weight decreased [Unknown]
  - Irritable bowel syndrome [Unknown]
  - Product use in unapproved indication [Unknown]
  - Vitamin D decreased [Unknown]
  - Abdominal pain [Not Recovered/Not Resolved]
  - Diarrhoea [Recovering/Resolving]
  - Hepatic enzyme increased [Unknown]
  - Tri-iodothyronine decreased [Unknown]
  - Drug ineffective for unapproved indication [Unknown]

NARRATIVE: CASE EVENT DATE: 2017
